FAERS Safety Report 24789370 (Version 1)
Quarter: 2024Q4

REPORT INFORMATION
  Report Type: Spontaneous
  Country: US (occurrence: US)
  Receive Date: 20241230
  Receipt Date: 20241230
  Transmission Date: 20250115
  Serious: No
  Sender: SANOFI AVENTIS
  Company Number: US-SANOFI-02350087

PATIENT
  Age: 59 Year
  Sex: Female

DRUGS (1)
  1. LANTUS [Suspect]
     Active Substance: INSULIN GLARGINE
     Indication: Type 2 diabetes mellitus
     Dosage: 60-70 UNITS HS
     Route: 058
     Dates: start: 2021

REACTIONS (3)
  - COVID-19 [Unknown]
  - Immune system disorder [Unknown]
  - Multi-organ disorder [Unknown]
